FAERS Safety Report 23607696 (Version 2)
Quarter: 2024Q1

REPORT INFORMATION
  Report Type: Report from Study
  Country: CA (occurrence: CA)
  Receive Date: 20240307
  Receipt Date: 20240310
  Transmission Date: 20240410
  Serious: Yes (Hospitalization, Other)
  Sender: FDA-Public Use
  Company Number: CA-SANDOZ-SDZ2023CA020882

PATIENT
  Age: 71 Year
  Sex: Male

DRUGS (1)
  1. ERELZI [Suspect]
     Active Substance: ETANERCEPT-SZZS
     Indication: Rheumatoid arthritis
     Dosage: 50 MG
     Route: 058
     Dates: start: 20211106

REACTIONS (8)
  - Bacterial infection [Unknown]
  - Arthropathy [Unknown]
  - Arthralgia [Recovered/Resolved]
  - Post procedural complication [Unknown]
  - Surgery [Unknown]
  - Movement disorder [Unknown]
  - Arthritis [Unknown]
  - Pustule [Unknown]

NARRATIVE: CASE EVENT DATE: 20231001
